FAERS Safety Report 8127299-2 (Version None)
Quarter: 2012Q1

REPORT INFORMATION
  Report Type: 
  Country: None (occurrence: None)
  Receive Date: 20120210
  Receipt Date: 20120202
  Transmission Date: 20120608
  Serious: No
  Sender: FDA-Public Use
  Company Number: US-JNJFOC-20120105645

PATIENT
  Sex: Male
  Weight: 58.97 kg

DRUGS (10)
  1. DURAGESIC-100 [Suspect]
     Route: 062
     Dates: start: 20120116
  2. DURAGESIC-100 [Suspect]
     Indication: BACK INJURY
     Route: 062
     Dates: start: 20120116, end: 20120116
  3. PERCOCET [Concomitant]
     Indication: PAIN
     Route: 048
     Dates: start: 20060101
  4. TIZANIDINE HCL [Concomitant]
     Indication: MUSCLE RELAXANT THERAPY
     Route: 065
     Dates: start: 20060101
  5. DURAGESIC-100 [Suspect]
     Route: 062
     Dates: start: 20070101, end: 20090101
  6. DURAGESIC-100 [Suspect]
     Route: 062
     Dates: start: 20120116, end: 20120116
  7. DURAGESIC-100 [Suspect]
     Route: 062
     Dates: start: 20090101, end: 20120116
  8. DURAGESIC-100 [Suspect]
     Route: 062
     Dates: start: 20120116
  9. DURAGESIC-100 [Suspect]
     Route: 062
     Dates: start: 20090101, end: 20120116
  10. DURAGESIC-100 [Suspect]
     Indication: LIMB CRUSHING INJURY
     Route: 062
     Dates: start: 20070101, end: 20090101

REACTIONS (9)
  - EXPIRED DRUG ADMINISTERED [None]
  - ACTIVITIES OF DAILY LIVING IMPAIRED [None]
  - DRUG INEFFECTIVE [None]
  - DEPRESSION [None]
  - VOMITING [None]
  - DECREASED APPETITE [None]
  - PAIN [None]
  - DRUG DISPENSING ERROR [None]
  - DRUG PRESCRIBING ERROR [None]
